FAERS Safety Report 14104621 (Version 4)
Quarter: 2018Q1

REPORT INFORMATION
  Report Type: Spontaneous
  Country: US (occurrence: US)
  Receive Date: 20171018
  Receipt Date: 20180212
  Transmission Date: 20180508
  Serious: No
  Sender: FDA-Public Use
  Company Number: US-LUNDBECK-DKLU2038238

PATIENT
  Sex: Male

DRUGS (2)
  1. NORTHERA [Suspect]
     Active Substance: DROXIDOPA
     Dosage: SCHEDULE C AND TITRATING
     Route: 048
  2. NORTHERA [Suspect]
     Active Substance: DROXIDOPA
     Indication: PRODUCT USED FOR UNKNOWN INDICATION
     Dosage: TITRATION SCHEDULE A (TITRATING)?ADDITIONAL INFORMATION INDICATED SCHEDULE C; TITRATING
     Route: 048
     Dates: start: 20171002

REACTIONS (2)
  - Dizziness [Not Recovered/Not Resolved]
  - Dizziness exertional [Not Recovered/Not Resolved]
